FAERS Safety Report 7519040-9 (Version None)
Quarter: 2011Q2

REPORT INFORMATION
  Report Type: 
  Country: None (occurrence: None)
  Receive Date: 20110602
  Receipt Date: 20110518
  Transmission Date: 20111010
  Serious: Yes (Hospitalization)
  Sender: FDA-Public Use
  Company Number: US-JNJFOC-20110509102

PATIENT
  Sex: Male
  Weight: 72.1 kg

DRUGS (14)
  1. IMIPENEM AND CILASTATIN SODIUM [Concomitant]
     Route: 042
  2. LORATADINE [Concomitant]
     Route: 048
  3. VALPROIC ACID [Concomitant]
  4. HUMIRA [Suspect]
     Indication: CROHN'S DISEASE
  5. FOLIC ACID [Concomitant]
     Route: 048
  6. REMICADE [Suspect]
     Indication: CROHN'S DISEASE
     Route: 042
  7. FLOMAX [Concomitant]
     Route: 048
  8. NEURONTIN [Concomitant]
  9. VALPROIC ACID [Concomitant]
  10. NEXIUM [Concomitant]
     Route: 048
  11. COUMADIN [Concomitant]
  12. AZATHIOPRINE [Concomitant]
     Indication: CROHN'S DISEASE
     Route: 048
  13. IMODIUM [Concomitant]
     Route: 048
  14. CALCIUM CARBONATE [Concomitant]
     Route: 048

REACTIONS (7)
  - ABDOMINAL ABSCESS [None]
  - DIARRHOEA [None]
  - PSOAS ABSCESS [None]
  - PNEUMATOSIS INTESTINALIS [None]
  - MENTAL STATUS CHANGES [None]
  - COAGULOPATHY [None]
  - PYREXIA [None]
